FAERS Safety Report 6231672-7 (Version None)
Quarter: 2009Q2

REPORT INFORMATION
  Report Type: 
  Country: None (occurrence: None)
  Receive Date: 20090616
  Receipt Date: 20090611
  Transmission Date: 20091009
  Serious: Yes (Hospitalization)
  Sender: FDA-Public Use
  Company Number: GB-MERCK-0906USA02196

PATIENT
  Age: 31 Year
  Sex: Female

DRUGS (2)
  1. ARAMINE [Suspect]
     Indication: HYPOTENSION
     Route: 030
  2. EPHEDRINE [Suspect]
     Indication: HYPOTENSION
     Route: 042

REACTIONS (1)
  - MYOCARDIAL INFARCTION [None]
